FAERS Safety Report 7995732-2 (Version None)
Quarter: 2011Q4

REPORT INFORMATION
  Report Type: 
  Country: None (occurrence: None)
  Receive Date: 20111220
  Receipt Date: 20111213
  Transmission Date: 20120403
  Serious: Yes (Other)
  Sender: FDA-Public Use
  Company Number: FR-BRISTOL-MYERS SQUIBB COMPANY-15538317

PATIENT
  Age: 39 Year
  Sex: Female
  Weight: 60 kg

DRUGS (4)
  1. ABILIFY [Suspect]
     Indication: PSYCHOTIC DISORDER
     Dosage: 15MG/DAY THEN DOSE REDUCED TO 10MG/DAY
     Route: 048
     Dates: start: 20070101, end: 20110207
  2. ZOLPIDEM [Suspect]
     Dosage: 1DF= 1TAB
     Route: 048
     Dates: end: 20110207
  3. CHLORPROMAZINE HCL [Suspect]
     Indication: PSYCHOTIC DISORDER
     Dates: start: 20110301
  4. OXAZEPAM [Suspect]
     Dosage: 1 DF: 1/2 DAILY
     Route: 048

REACTIONS (3)
  - PREGNANCY [None]
  - MATERNAL EXPOSURE DURING PREGNANCY [None]
  - ABORTION INDUCED [None]
